FAERS Safety Report 9575126 (Version 3)
Quarter: 2013Q4

REPORT INFORMATION
  Report Type: Spontaneous
  Country: JP (occurrence: JP)
  Receive Date: 20131001
  Receipt Date: 20131028
  Transmission Date: 20140711
  Serious: Yes (Life-Threatening, Hospitalization, Disabling, Other)
  Sender: FDA-Public Use
  Company Number: JP-PFIZER INC-2013240282

PATIENT
  Age: 57 Year
  Sex: Male
  Weight: 55.5 kg

DRUGS (10)
  1. CELECOX [Suspect]
     Indication: PHARYNX RADIATION INJURY
     Dosage: 100 MG, 2X/DAY
     Route: 048
     Dates: start: 20130805, end: 20130805
  2. CISPLATIN [Concomitant]
     Indication: HYPOPHARYNGEAL CANCER
     Dosage: 20 MG, DAILY
     Route: 042
     Dates: start: 20130729, end: 20130801
  3. 5-FU [Concomitant]
     Indication: HYPOPHARYNGEAL CANCER
     Dosage: 400 MG, DAILY
     Route: 042
     Dates: start: 20130729, end: 20130802
  4. GRANISETRON [Concomitant]
     Indication: PROPHYLAXIS OF NAUSEA AND VOMITING
     Dosage: 3 MG, 1X/DAY
     Route: 042
     Dates: start: 20130729, end: 20130731
  5. DEXART [Concomitant]
     Indication: PROPHYLAXIS OF NAUSEA AND VOMITING
     Dosage: 6.6 MG, 1X/DAY
     Route: 042
     Dates: start: 20130729, end: 20130801
  6. ALOXI [Concomitant]
     Indication: PROPHYLAXIS OF NAUSEA AND VOMITING
     Dosage: 0.75 MG, 1X/DAY
     Route: 042
     Dates: start: 20130801, end: 20130801
  7. MANNITOL [Concomitant]
     Indication: PROPHYLAXIS
     Dosage: 300 ML, 1X/DAY
     Route: 042
     Dates: start: 20130729, end: 20130801
  8. EMEND [Concomitant]
     Indication: PROPHYLAXIS OF NAUSEA AND VOMITING
     Dosage: 125 MG, 1X/DAY
     Route: 048
     Dates: start: 20130729, end: 20130729
  9. EMEND [Concomitant]
     Dosage: 80 MG, 1X/DAY
     Route: 048
     Dates: start: 20130730, end: 20130731
  10. FLORID [Concomitant]
     Indication: ORAL CANDIDIASIS
     Dosage: 5 G, 4X/DAY
     Route: 048
     Dates: start: 20130806, end: 20130806

REACTIONS (11)
  - Cerebral artery embolism [Not Recovered/Not Resolved]
  - C-reactive protein increased [Unknown]
  - Alanine aminotransferase increased [Unknown]
  - Aspartate aminotransferase increased [Unknown]
  - Blood glucose increased [Unknown]
  - Gamma-glutamyltransferase increased [Unknown]
  - Red blood cell count decreased [Unknown]
  - Platelet count decreased [Unknown]
  - Mean cell haemoglobin concentration increased [Unknown]
  - Haemoglobin decreased [Unknown]
  - Haematocrit decreased [Unknown]
